FAERS Safety Report 5740769-7 (Version None)
Quarter: 2008Q2

REPORT INFORMATION
  Report Type: 
  Country: None (occurrence: None)
  Receive Date: 20080516
  Receipt Date: 20080506
  Transmission Date: 20081010
  Serious: Yes (Other)
  Sender: FDA-Public Use
  Company Number: BR-ELI_LILLY_AND_COMPANY-BR200805001050

PATIENT
  Sex: Female

DRUGS (4)
  1. CYMBALTA [Suspect]
     Dosage: UNK, UNKNOWN
     Route: 065
  2. SYNTHROID [Concomitant]
     Dosage: 20 UG, DAILY (1/D)
     Route: 065
  3. GLUCOFORMIN [Concomitant]
     Indication: DIABETES MELLITUS
     Dosage: 500 MG, UNKNOWN
     Route: 065
  4. RIVOTRIL [Concomitant]
     Indication: ANXIETY
     Dosage: UNK, UNKNOWN
     Route: 065

REACTIONS (2)
  - EYE PRURITUS [None]
  - VISUAL ACUITY REDUCED [None]
